FAERS Safety Report 22285071 (Version 2)
Quarter: 2023Q2

REPORT INFORMATION
  Report Type: Spontaneous
  Country: IN (occurrence: IN)
  Receive Date: 20230504
  Receipt Date: 20230508
  Transmission Date: 20230721
  Serious: Yes (Other)
  Sender: FDA-Public Use
  Company Number: IN-PFIZER INC-2019403554

PATIENT
  Age: 70 Year
  Sex: Male
  Weight: 91.1 kg

DRUGS (2)
  1. CRIZOTINIB [Suspect]
     Active Substance: CRIZOTINIB
     Indication: Lung neoplasm malignant
     Dosage: 250 MG, 2X/DAY
     Route: 048
     Dates: start: 20171128
  2. CRIZOTINIB [Suspect]
     Active Substance: CRIZOTINIB
     Dosage: 250 MG, 2X/DAY
     Route: 048
     Dates: start: 20180501

REACTIONS (11)
  - Prostatectomy [Recovered/Resolved]
  - Neoplasm progression [Unknown]
  - Cough [Unknown]
  - Pruritus [Unknown]
  - Vomiting [Unknown]
  - Pallor [Unknown]
  - Constipation [Unknown]
  - Dysuria [Unknown]
  - Full blood count abnormal [Unknown]
  - Pyrexia [Recovered/Resolved]
  - Sneezing [Unknown]

NARRATIVE: CASE EVENT DATE: 20201113
